FAERS Safety Report 7609914-2 (Version None)
Quarter: 2011Q3

REPORT INFORMATION
  Report Type: 
  Country: None (occurrence: None)
  Receive Date: 20110714
  Receipt Date: 20110712
  Transmission Date: 20111222
  Serious: Yes (Other)
  Sender: FDA-Public Use
  Company Number: CHPA2011DE03127

PATIENT
  Age: 26 Year
  Sex: Female

DRUGS (2)
  1. NUVARING [Concomitant]
     Dosage: UNK, UNK
     Route: 065
  2. NICOTINELL TTS 10 [Suspect]
     Indication: SMOKING CESSATION THERAPY
     Dosage: 7 MG, QD
     Route: 062
     Dates: start: 20110220, end: 20110221

REACTIONS (8)
  - PARAESTHESIA [None]
  - CARDIOVASCULAR INSUFFICIENCY [None]
  - NAUSEA [None]
  - DIARRHOEA [None]
  - HEART RATE INCREASED [None]
  - PRURITUS [None]
  - BURNING SENSATION [None]
  - APPLICATION SITE PRURITUS [None]
